FAERS Safety Report 10286529 (Version 2)
Quarter: 2014Q3

REPORT INFORMATION
  Report Type: Spontaneous
  Country: PL (occurrence: PL)
  Receive Date: 20140709
  Receipt Date: 20140803
  Transmission Date: 20150326
  Serious: Yes (Other)
  Sender: FDA-Public Use
  Company Number: PHHY2014PL083350

PATIENT
  Age: 43 Year
  Sex: Female

DRUGS (4)
  1. EUTHYROX [Concomitant]
     Active Substance: LEVOTHYROXINE SODIUM
     Dosage: 37.5 NG, QD
     Route: 048
  2. NIMESIL [Concomitant]
     Active Substance: NIMESULIDE
     Route: 048
     Dates: start: 20140625
  3. TORECAN [Concomitant]
     Active Substance: THIETHYLPERAZINE MALATE
     Route: 048
     Dates: start: 20140625
  4. BROMERGON [Suspect]
     Active Substance: BROMOCRIPTINE MESYLATE
     Dosage: 1.25 MG, QD
     Route: 048
     Dates: start: 2013, end: 20140702

REACTIONS (7)
  - Somnolence [Recovered/Resolved]
  - Vision blurred [Recovering/Resolving]
  - Diarrhoea [Recovered/Resolved]
  - Blood prolactin increased [Recovering/Resolving]
  - Headache [Recovered/Resolved]
  - Dizziness [Recovered/Resolved]
  - Decreased appetite [Recovered/Resolved]

NARRATIVE: CASE EVENT DATE: 201406
